FAERS Safety Report 9279286 (Version 1)
Quarter: 2013Q2

REPORT INFORMATION
  Report Type: Spontaneous
  Country: US (occurrence: US)
  Receive Date: 20130508
  Receipt Date: 20130508
  Transmission Date: 20140414
  Serious: Yes (Hospitalization)
  Sender: FDA-Public Use
  Company Number: US-BAXTER-2013BAX016483

PATIENT
  Age: 81 Year
  Sex: Male

DRUGS (6)
  1. DIANEAL LOW CALCIUM [Suspect]
     Indication: PERITONEAL DIALYSIS
     Route: 033
     Dates: start: 20120302
  2. DIANEAL LOW CALCIUM [Suspect]
     Route: 033
     Dates: start: 20120302, end: 201304
  3. DIANEAL LOW CALCIUM [Suspect]
     Route: 033
     Dates: start: 201304
  4. DIANEAL LOW CALCIUM [Suspect]
     Indication: PERITONEAL DIALYSIS
     Route: 033
     Dates: start: 20120302, end: 201304
  5. DIANEAL LOW CALCIUM [Suspect]
     Route: 033
     Dates: start: 20120302, end: 201304
  6. DIANEAL LOW CALCIUM (ULTRABAG) [Suspect]
     Indication: PERITONEAL DIALYSIS
     Route: 033
     Dates: start: 20120302, end: 201304

REACTIONS (3)
  - Abdominal distension [Recovered/Resolved]
  - Hypotension [Recovered/Resolved]
  - Fluid overload [Recovering/Resolving]
